FAERS Safety Report 18290980 (Version 2)
Quarter: 2020Q4

REPORT INFORMATION
  Report Type: Spontaneous
  Country: US (occurrence: US)
  Receive Date: 20200921
  Receipt Date: 20201125
  Transmission Date: 20210113
  Serious: Yes (Death, Other)
  Sender: FDA-Public Use
  Company Number: US-BRISTOL-MYERS SQUIBB COMPANY-BMS-2020-076428

PATIENT
  Sex: Female
  Weight: 69.84 kg

DRUGS (2)
  1. YERVOY [Suspect]
     Active Substance: IPILIMUMAB
     Indication: NEUROENDOCRINE TUMOUR
     Dosage: 240 MILLIGRAM, Q6WK
     Route: 042
     Dates: start: 20200625
  2. OPDIVO [Suspect]
     Active Substance: NIVOLUMAB
     Indication: NEUROENDOCRINE TUMOUR
     Dosage: 75 MILLIGRAM, Q2WK
     Route: 042
     Dates: start: 20200617

REACTIONS (2)
  - Intentional product use issue [Unknown]
  - Death [Fatal]
